FAERS Safety Report 19818705 (Version 1)
Quarter: 2021Q3

REPORT INFORMATION
  Report Type: Spontaneous
  Country: US (occurrence: US)
  Receive Date: 20210912
  Receipt Date: 20210912
  Transmission Date: 20211014
  Serious: Yes (Other)
  Sender: FDA-Public Use
  Company Number: US-SA-2021SA298030

PATIENT
  Age: 64 Year
  Sex: Male

DRUGS (1)
  1. ZANTAC [Suspect]
     Active Substance: RANITIDINE HYDROCHLORIDE
     Indication: GASTROOESOPHAGEAL REFLUX DISEASE
     Dosage: 75 MG, FREQUENCY: OTHER
     Dates: start: 199001, end: 200401

REACTIONS (1)
  - Colorectal cancer stage I [Recovering/Resolving]

NARRATIVE: CASE EVENT DATE: 20150101
